FAERS Safety Report 6383311-2 (Version None)
Quarter: 2009Q4

REPORT INFORMATION
  Report Type: 
  Country: None (occurrence: None)
  Receive Date: 20091001
  Receipt Date: 20090921
  Transmission Date: 20100525
  Serious: Yes (Hospitalization)
  Sender: FDA-Public Use
  Company Number: US-BIOGENIDEC-178747

PATIENT
  Age: 51 Year
  Sex: Female

DRUGS (5)
  1. AVONEX [Suspect]
     Indication: MULTIPLE SCLEROSIS
     Route: 030
     Dates: start: 20010401, end: 20030613
  2. PAXIL [Concomitant]
     Indication: DEPRESSION
  3. PREMARIN [Concomitant]
     Indication: HORMONE REPLACEMENT THERAPY
  4. ADVAIR DISKUS 100/50 [Concomitant]
     Indication: ASTHMA
     Dates: start: 20030301
  5. COMBIVENT [Concomitant]
     Indication: ASTHMA
     Dates: start: 20030301

REACTIONS (14)
  - ANTINUCLEAR ANTIBODY POSITIVE [None]
  - CHILLS [None]
  - DEHYDRATION [None]
  - DRUG ERUPTION [None]
  - EOSINOPHILIA [None]
  - LYMPHADENOPATHY [None]
  - NAUSEA [None]
  - NECROSIS [None]
  - PAIN [None]
  - PYREXIA [None]
  - SHIFT TO THE LEFT [None]
  - SINUSITIS [None]
  - VASCULITIS [None]
  - WHITE BLOOD CELL COUNT INCREASED [None]
